FAERS Safety Report 18897975 (Version 1)
Quarter: 2021Q1

REPORT INFORMATION
  Report Type: Spontaneous
  Country: US (occurrence: US)
  Receive Date: 20210212
  Receipt Date: 20210212
  Transmission Date: 20210420
  Serious: Yes (Other)
  Sender: FDA-Public Use
  Company Number: None

PATIENT

DRUGS (1)
  1. ROCURONIUM 50MG/5ML [Suspect]
     Active Substance: ROCURONIUM BROMIDE

REACTIONS (2)
  - Drug effect less than expected [None]
  - Product quality issue [None]

NARRATIVE: CASE EVENT DATE: 20210129
